FAERS Safety Report 5310755-X (Version None)
Quarter: 2007Q2

REPORT INFORMATION
  Report Type: 
  Country: None (occurrence: None)
  Receive Date: 20070428
  Receipt Date: 20070416
  Transmission Date: 20071010
  Serious: Yes (Death, Other)
  Sender: FDA-Public Use
  Company Number: NL-PFIZER INC-2007027599

PATIENT
  Age: 60 Year
  Sex: Male

DRUGS (4)
  1. PHENYTOIN [Suspect]
  2. MIDAZOLAM HCL [Concomitant]
  3. VALPROATE SODIUM [Concomitant]
     Route: 042
  4. PROPOFOL [Concomitant]

REACTIONS (6)
  - ANTICONVULSANT DRUG LEVEL INCREASED [None]
  - COMA [None]
  - HYPOALBUMINAEMIA [None]
  - MULTI-ORGAN FAILURE [None]
  - NERVOUS SYSTEM DISORDER [None]
  - THERAPEUTIC AGENT TOXICITY [None]
